FAERS Safety Report 7092783-X (Version None)
Quarter: 2010Q4

REPORT INFORMATION
  Report Type: 
  Country: None (occurrence: None)
  Receive Date: 20101110
  Receipt Date: 20101027
  Transmission Date: 20110411
  Serious: Yes (Other)
  Sender: FDA-Public Use
  Company Number: US-PFIZER INC-2007075303

PATIENT
  Sex: Male
  Weight: 108.84 kg

DRUGS (3)
  1. CHANTIX [Suspect]
     Indication: SMOKING CESSATION THERAPY
     Dosage: 0.5 MG, 1X/DAY
     Dates: start: 20070809, end: 20070811
  2. CHANTIX [Suspect]
     Dosage: 0.5 MG, 2X/DAY
     Dates: start: 20070812, end: 20070815
  3. CHANTIX [Suspect]
     Dosage: 1 MG, 2X/DAY
     Dates: start: 20070816, end: 20070906

REACTIONS (2)
  - DYSPNOEA [None]
  - HEART RATE INCREASED [None]
